FAERS Safety Report 18459184 (Version 1)
Quarter: 2020Q4

REPORT INFORMATION
  Report Type: Spontaneous
  Country: US (occurrence: US)
  Receive Date: 20201103
  Receipt Date: 20201103
  Transmission Date: 20210114
  Serious: No
  Sender: FDA-Public Use
  Company Number: US-PFIZER INC-2020419605

PATIENT
  Sex: Male

DRUGS (2)
  1. GEMFIBROZIL. [Suspect]
     Active Substance: GEMFIBROZIL
     Dosage: UNK
  2. XTANDI [Suspect]
     Active Substance: ENZALUTAMIDE
     Dosage: 80 MG, DAILY
     Dates: start: 202008

REACTIONS (1)
  - Dizziness postural [Unknown]
